FAERS Safety Report 19926298 (Version 1)
Quarter: 2021Q4

REPORT INFORMATION
  Report Type: Spontaneous
  Country: GB (occurrence: GB)
  Receive Date: 20211007
  Receipt Date: 20211007
  Transmission Date: 20220303
  Serious: Yes (Other)
  Sender: FDA-Public Use
  Company Number: GB-ROCHE-2928866

PATIENT
  Age: 68 Year
  Sex: Female
  Weight: 69.09 kg

DRUGS (8)
  1. IBANDRONIC ACID [Suspect]
     Active Substance: IBANDRONIC ACID
     Indication: Localised infection
     Dosage: 150 MG
     Route: 048
  2. COCODAMOL [Concomitant]
     Active Substance: ACETAMINOPHEN\CODEINE PHOSPHATE
     Indication: Product used for unknown indication
     Dosage: 1-2 TABLETS UP TO FOUR TIMES DAILY WHEN REQUIRED
     Dates: start: 20210901
  3. COCODAMOL [Concomitant]
     Active Substance: ACETAMINOPHEN\CODEINE PHOSPHATE
     Dosage: 1-2 TABLETS UP TO FOUR TIMES DAILY WHEN REQUIRED
     Dates: start: 20210927
  4. COCODAMOL [Concomitant]
     Active Substance: ACETAMINOPHEN\CODEINE PHOSPHATE
     Dosage: 1-2 TABLETS UP TO FOUR TIMES DAILY WHEN REQUIRED
     Dates: start: 20210709
  5. FERROUS FUMARATE [Concomitant]
     Active Substance: FERROUS FUMARATE
     Indication: Product used for unknown indication
     Dates: start: 20210706
  6. FLUCLOXACILLIN [Concomitant]
     Active Substance: FLUCLOXACILLIN
     Indication: Product used for unknown indication
     Dates: start: 20210907
  7. LANSOPRAZOLE [Concomitant]
     Active Substance: LANSOPRAZOLE
     Indication: Product used for unknown indication
     Dosage: NOTES FOR PATIENT: TRY TO MANAGE ON LOWER DOSE LANSOPRAZOLE
     Dates: start: 20210728
  8. LANSOPRAZOLE [Concomitant]
     Active Substance: LANSOPRAZOLE
     Dates: start: 20210706

REACTIONS (1)
  - Melaena [Recovered/Resolved]
